FAERS Safety Report 5276870-4 (Version None)
Quarter: 2007Q1

REPORT INFORMATION
  Report Type: 
  Country: None (occurrence: None)
  Receive Date: 20070327
  Receipt Date: 20070319
  Transmission Date: 20070707
  Serious: Yes (Disabling)
  Sender: FDA-Public Use
  Company Number: HQWYE720115FEB07

PATIENT
  Sex: Male

DRUGS (4)
  1. ENBREL [Suspect]
     Indication: PSORIATIC ARTHROPATHY
     Route: 058
     Dates: start: 20061205
  2. TRILEPTAL [Concomitant]
     Indication: NEURALGIA
     Dosage: ONE HALF TABLET ONCE DAILY
     Route: 048
     Dates: start: 20070101
  3. ULTRACET [Concomitant]
     Indication: ANALGESIC EFFECT
     Route: 048
     Dates: start: 20070201
  4. MEDROL [Concomitant]
     Route: 048
     Dates: start: 20070201

REACTIONS (10)
  - ARTHRALGIA [None]
  - DERMATITIS EXFOLIATIVE [None]
  - DIZZINESS [None]
  - HAEMATOMA [None]
  - HAEMOGLOBIN DECREASED [None]
  - HEADACHE [None]
  - MEDICATION ERROR [None]
  - PAIN [None]
  - PYREXIA [None]
  - URINARY TRACT INFECTION [None]
